FAERS Safety Report 13012476 (Version 6)
Quarter: 2017Q1

REPORT INFORMATION
  Report Type: Report from Study
  Country: GB (occurrence: GB)
  Receive Date: 20161209
  Receipt Date: 20170307
  Transmission Date: 20170428
  Serious: Yes (Hospitalization)
  Sender: FDA-Public Use
  Company Number: PHHO2016GB017894

PATIENT
  Age: 67 Year
  Sex: Male
  Weight: 99.6 kg

DRUGS (12)
  1. BENZYDAMINE [Concomitant]
     Active Substance: BENZYDAMINE
     Indication: DENTAL DISORDER PROPHYLAXIS
     Dosage: 10 ML, QID
     Route: 048
     Dates: start: 20160904
  2. CYCLOSPORINE A [Suspect]
     Active Substance: CYCLOSPORINE
     Indication: APLASTIC ANAEMIA
     Dosage: 200 MG, BID
     Route: 042
     Dates: start: 20160908, end: 20170108
  3. ACICLOVIR [Concomitant]
     Active Substance: ACYCLOVIR
     Indication: ANTIVIRAL PROPHYLAXIS
     Dosage: 400 MG, BID
     Route: 048
     Dates: start: 20160908
  4. ANTITHYMOCYTE IMMUNOGLOBULIN [Suspect]
     Active Substance: THYMOCYTE IMMUNE GLOBULIN NOS
     Indication: APLASTIC ANAEMIA
     Dosage: 4032 MG, QD
     Route: 042
     Dates: start: 20160908, end: 20160911
  5. MAGNESIUM ASPARTATE [Concomitant]
     Active Substance: MAGNESIUM ASPARTATE
     Indication: MAGNESIUM DEFICIENCY
     Dosage: 2 SACHETS (ONCE PER DAY)
     Route: 048
  6. OMEPRAZOLE. [Concomitant]
     Active Substance: OMEPRAZOLE
     Indication: PROPHYLAXIS AGAINST GASTROINTESTINAL ULCER
     Dosage: 20 MG, QD
     Route: 048
     Dates: start: 20160905, end: 20170103
  7. AMILORIDE [Concomitant]
     Active Substance: AMILORIDE
     Indication: HYPERTENSION
     Dosage: 10 MG, QD
     Route: 048
     Dates: start: 20161201, end: 20170103
  8. CYCLIZINE [Concomitant]
     Active Substance: CYCLIZINE
     Indication: NAUSEA
     Dosage: 50 MG, TID
     Route: 048
     Dates: start: 20161117
  9. POSACONAZOLE [Concomitant]
     Active Substance: POSACONAZOLE
     Indication: ANTIFUNGAL PROPHYLAXIS
     Dosage: 300 MG, QD
     Route: 048
     Dates: start: 20161007, end: 20170102
  10. TAZOCIN [Concomitant]
     Active Substance: PIPERACILLIN SODIUM\TAZOBACTAM SODIUM
     Indication: PRODUCT USED FOR UNKNOWN INDICATION
     Dosage: UNK
     Route: 065
  11. CIPROFLOXACIN. [Concomitant]
     Active Substance: CIPROFLOXACIN
     Indication: ANTIBIOTIC PROPHYLAXIS
     Dosage: 500 MG, BID
     Route: 048
     Dates: start: 201611
  12. METOCLOPRAMIDE. [Concomitant]
     Active Substance: METOCLOPRAMIDE
     Indication: NAUSEA
     Dosage: 10 MG, TID
     Route: 048
     Dates: start: 20161117, end: 20170103

REACTIONS (12)
  - Atrioventricular block second degree [Unknown]
  - Sepsis [Not Recovered/Not Resolved]
  - Acute kidney injury [Recovering/Resolving]
  - Oedema peripheral [Recovered/Resolved]
  - Atrial fibrillation [Recovered/Resolved]
  - Decreased appetite [Not Recovered/Not Resolved]
  - Atrial fibrillation [Not Recovered/Not Resolved]
  - Sepsis [Recovered/Resolved]
  - Atrial flutter [Unknown]
  - Pulmonary oedema [Not Recovered/Not Resolved]
  - Sepsis [Recovered/Resolved]
  - Acute kidney injury [Recovered/Resolved]

NARRATIVE: CASE EVENT DATE: 20160913
